FAERS Safety Report 7508703-7 (Version None)
Quarter: 2011Q2

REPORT INFORMATION
  Report Type: 
  Country: None (occurrence: None)
  Receive Date: 20110527
  Receipt Date: 20100805
  Transmission Date: 20111010
  Serious: No
  Sender: FDA-Public Use
  Company Number: A0874217A

PATIENT
  Sex: Male

DRUGS (7)
  1. MONOPRIL [Concomitant]
  2. NITROGLYCERIN SPRAY [Concomitant]
  3. WARFARIN SODIUM [Concomitant]
  4. ASPIRIN [Concomitant]
  5. GLUCOVANCE [Concomitant]
  6. LISTROL [Concomitant]
  7. ALBUTEROL SULFATE AUTOHALER [Suspect]
     Indication: ASTHMA
     Dosage: 90MCG FOUR TIMES PER DAY
     Route: 055

REACTIONS (3)
  - COUGH [None]
  - DRUG INEFFECTIVE [None]
  - APHONIA [None]
